FAERS Safety Report 10193775 (Version 1)
Quarter: 2014Q2

REPORT INFORMATION
  Report Type: Spontaneous
  Country: US (occurrence: US)
  Receive Date: 20140524
  Receipt Date: 20140524
  Transmission Date: 20141212
  Serious: No
  Sender: FDA-Public Use
  Company Number: US-SANOFI-AVENTIS-2013SA043423

PATIENT
  Age: 65 Year
  Sex: Female

DRUGS (3)
  1. SOLOSTAR [Suspect]
     Indication: TYPE 2 DIABETES MELLITUS
     Dates: start: 20130424
  2. LANTUS SOLOSTAR [Suspect]
     Indication: TYPE 2 DIABETES MELLITUS
     Dosage: DOSE:30 UNIT(S)
     Route: 058
     Dates: start: 20130424
  3. HUMALIN [Concomitant]

REACTIONS (3)
  - Injury associated with device [Unknown]
  - Blood glucose decreased [Unknown]
  - Nervousness [Unknown]
